FAERS Safety Report 21513041 (Version 7)
Quarter: 2022Q4

REPORT INFORMATION
  Report Type: Report from Study
  Country: AT (occurrence: None)
  Receive Date: 20221027
  Receipt Date: 20221216
  Transmission Date: 20230112
  Serious: Yes (Hospitalization)
  Sender: FDA-Public Use
  Company Number: AT-Eisai Medical Research-EC-2022-126610

PATIENT
  Age: 64 Year
  Sex: Male
  Weight: 73 kg

DRUGS (8)
  1. LENVATINIB [Suspect]
     Active Substance: LENVATINIB
     Indication: Small cell lung cancer extensive stage
     Route: 048
     Dates: start: 20220518, end: 20221013
  2. QUAVONLIMAB [Suspect]
     Active Substance: QUAVONLIMAB
     Indication: Small cell lung cancer extensive stage
     Dosage: QUAVONLIMAB 25 MG + PEMBROLIZUMAB 400 MG
     Route: 042
     Dates: start: 20220518, end: 20220810
  3. PEMBROLIZUMAB [Suspect]
     Active Substance: PEMBROLIZUMAB
     Dosage: QUAVONLIMAB 25 MG + PEMBROLIZUMAB 400 MG
     Route: 042
     Dates: start: 20220921, end: 20220921
  4. EDOXABAN TOSYLATE [Concomitant]
     Active Substance: EDOXABAN TOSYLATE
     Dates: start: 202111
  5. OXYGEN [Concomitant]
     Active Substance: OXYGEN
     Dates: start: 202108
  6. HERBALS [Concomitant]
     Active Substance: HERBALS
     Dates: start: 20220525
  7. METHYLPREDNISOLONE ACEPONATE [Concomitant]
     Active Substance: METHYLPREDNISOLONE ACEPONATE
     Dates: start: 20220831
  8. NERIDERM [Concomitant]
     Dates: start: 202208

REACTIONS (1)
  - Hyponatraemia [Not Recovered/Not Resolved]

NARRATIVE: CASE EVENT DATE: 20220920
